FAERS Safety Report 4967670-0 (Version None)
Quarter: 2006Q2

REPORT INFORMATION
  Report Type: 
  Country: None (occurrence: None)
  Receive Date: 20060405
  Receipt Date: 20060329
  Transmission Date: 20061013
  Serious: Yes (Hospitalization, Other)
  Sender: FDA-Public Use
  Company Number: 2005167162

PATIENT
  Age: 87 Year
  Sex: Female
  Weight: 69 kg

DRUGS (6)
  1. CELEBREX [Suspect]
     Indication: OSTEOARTHRITIS
     Dosage: 200 MG (200 MG, 1 IN 1 D), ORAL
     Route: 048
     Dates: start: 20040709
  2. CO-PROXAMOL (DEXTROPROPOXYPHENE HYDROCHLORIDE, PARACETAMOL) [Concomitant]
  3. GLIPIZIDE [Concomitant]
  4. AMLODIPINE [Concomitant]
  5. VALSARTAN [Concomitant]
  6. PIOGLITAZONE HCL [Concomitant]

REACTIONS (1)
  - GRAND MAL CONVULSION [None]
